FAERS Safety Report 12374567 (Version 1)
Quarter: 2016Q2

REPORT INFORMATION
  Report Type: Spontaneous
  Country: TR (occurrence: TR)
  Receive Date: 20160517
  Receipt Date: 20160517
  Transmission Date: 20160815
  Serious: Yes (Hospitalization)
  Sender: FDA-Public Use
  Company Number: PHHY2016TR065923

PATIENT
  Age: 16 Month
  Sex: Male

DRUGS (1)
  1. OCTREOTIDE. [Suspect]
     Active Substance: OCTREOTIDE
     Indication: PLEURAL EFFUSION
     Dosage: 25 UG/KG, QD
     Route: 058

REACTIONS (2)
  - Product use issue [Unknown]
  - Condition aggravated [Unknown]
